FAERS Safety Report 4333400-9 (Version None)
Quarter: 2004Q1

REPORT INFORMATION
  Report Type: 
  Country: None (occurrence: None)
  Receive Date: 20040329
  Receipt Date: 20040225
  Transmission Date: 20041129
  Serious: No
  Sender: FDA-Public Use
  Company Number: 04P-163-0251415-00

PATIENT
  Age: 68 Year
  Sex: Female
  Weight: 77.1115 kg

DRUGS (9)
  1. HUMIRA [Suspect]
     Indication: RHEUMATOID ARTHRITIS
     Dosage: 40 MG, SUBCUTANEOUS
     Route: 058
     Dates: start: 20040127
  2. HYDROCODONE [Concomitant]
  3. RAMIPRIL [Concomitant]
  4. DYAZIDE [Concomitant]
  5. PREDNISONE [Concomitant]
  6. LANSOPRAZOLE [Concomitant]
  7. CARVEDILOL [Concomitant]
  8. CYCLOSPORINE [Concomitant]
  9. ALENDRONATE SODIUM [Concomitant]

REACTIONS (1)
  - SCIATICA [None]
